FAERS Safety Report 18432275 (Version 1)
Quarter: 2020Q4

REPORT INFORMATION
  Report Type: Spontaneous
  Country: AU (occurrence: AU)
  Receive Date: 20201027
  Receipt Date: 20201027
  Transmission Date: 20210114
  Serious: Yes (Other)
  Sender: FDA-Public Use
  Company Number: AU-PFIZER INC-2020410315

PATIENT
  Age: 31 Year
  Sex: Female

DRUGS (1)
  1. MEPERIDINE HCL [Suspect]
     Active Substance: MEPERIDINE HYDROCHLORIDE
     Indication: EPIDURAL ANALGESIA
     Dosage: UNK (60-ML DISPOSABLE PCEA PUMP THAT DELIVERS 4 ML OF 5 MG/ML PETHIDINE PER BOLUS)
     Route: 008

REACTIONS (3)
  - Cerebrospinal fluid leakage [Recovered/Resolved]
  - Off label use [Unknown]
  - Product use issue [Unknown]
